FAERS Safety Report 8124672-3 (Version None)
Quarter: 2012Q1

REPORT INFORMATION
  Report Type: 
  Country: None (occurrence: None)
  Receive Date: 20120209
  Receipt Date: 20120209
  Transmission Date: 20120608
  Serious: Yes (Hospitalization)
  Sender: FDA-Public Use
  Company Number: None

PATIENT
  Sex: Female
  Weight: 72.574 kg

DRUGS (1)
  1. STELARA [Suspect]
     Indication: PSORIASIS
     Dosage: USUAL DOSE
     Route: 042

REACTIONS (2)
  - ENTEROCOLITIS INFECTIOUS [None]
  - INFECTION IN AN IMMUNOCOMPROMISED HOST [None]
